FAERS Safety Report 6917537-3 (Version None)
Quarter: 2010Q3

REPORT INFORMATION
  Report Type: 
  Country: None (occurrence: None)
  Receive Date: 20100810
  Receipt Date: 20100803
  Transmission Date: 20110219
  Serious: Yes (Other)
  Sender: FDA-Public Use
  Company Number: US-JNJCH-2007065361

PATIENT
  Sex: Male
  Weight: 113.4 kg

DRUGS (11)
  1. ZYRTEC [Suspect]
     Indication: HYPERSENSITIVITY
     Route: 065
  2. ZETIA [Concomitant]
     Route: 065
  3. ACETYLSALICYLIC ACID SRT [Concomitant]
     Route: 065
  4. LOVASTATIN [Concomitant]
     Route: 065
  5. LISINOPRIL [Concomitant]
     Route: 065
  6. TRIAMTERENE AND HYDROCHLOROTHIAZIDE [Concomitant]
     Route: 065
  7. FUROSEMIDE [Concomitant]
     Route: 065
  8. SPIRIVA [Concomitant]
     Route: 065
  9. COREG [Concomitant]
     Route: 065
  10. SINGULAIR [Concomitant]
     Route: 065
  11. ALLOPURINOL [Concomitant]
     Route: 065

REACTIONS (2)
  - CORONARY ARTERY BYPASS [None]
  - HEPATIC ENZYME INCREASED [None]
